FAERS Safety Report 25874097 (Version 1)
Quarter: 2025Q4

REPORT INFORMATION
  Report Type: Spontaneous
  Country: CN (occurrence: CN)
  Receive Date: 20251002
  Receipt Date: 20251002
  Transmission Date: 20260118
  Serious: Yes (Hospitalization)
  Sender: PFIZER
  Company Number: CN-PFIZER INC-PV202500116113

PATIENT
  Age: 3 Year
  Sex: Male
  Weight: 15 kg

DRUGS (4)
  1. CYTARABINE [Suspect]
     Active Substance: CYTARABINE
     Indication: Acute lymphocytic leukaemia
     Dosage: 0.064 G, 1X/DAY
     Route: 041
     Dates: start: 20250830, end: 20250903
  2. PEGASPARGASE [Suspect]
     Active Substance: PEGASPARGASE
     Indication: Acute lymphocytic leukaemia
     Dosage: 1280 IU, 1X/DAY
     Route: 030
     Dates: start: 20250829, end: 20250829
  3. CYCLOPHOSPHAMIDE [Suspect]
     Active Substance: CYCLOPHOSPHAMIDE
     Indication: Acute lymphocytic leukaemia
     Dosage: 0.6 G, 1X/DAY
     Route: 041
     Dates: start: 20250828, end: 20250828
  4. DEXAMETHASONE SODIUM PHOSPHATE [Concomitant]
     Active Substance: DEXAMETHASONE SODIUM PHOSPHATE
     Indication: Acute lymphocytic leukaemia
     Dosage: 5 MG, 1X/DAY
     Route: 041
     Dates: start: 20250828, end: 20250903

REACTIONS (4)
  - Myelosuppression [Recovering/Resolving]
  - Drug-induced liver injury [Unknown]
  - White blood cell count decreased [Recovering/Resolving]
  - N-terminal prohormone brain natriuretic peptide increased [Unknown]

NARRATIVE: CASE EVENT DATE: 20250831
